FAERS Safety Report 18437281 (Version 2)
Quarter: 2020Q4

REPORT INFORMATION
  Report Type: Other
  Country: GR (occurrence: GR)
  Receive Date: 20201028
  Receipt Date: 20201210
  Transmission Date: 20210114
  Serious: Yes (Hospitalization)
  Sender: FDA-Public Use
  Company Number: GR-ROCHE-2702270

PATIENT
  Age: 63 Year
  Sex: Male

DRUGS (1)
  1. METALYSE [Suspect]
     Active Substance: TENECTEPLASE
     Indication: ISCHAEMIC STROKE
     Dosage: TENECTEPLASE BOLUS INJECTION (DOSE OF 0.25 MG/KG OF BODY WEIGHT, ONSET-TO-NEEDLE TIME OF 120 MINUTES
     Route: 042

REACTIONS (3)
  - General physical health deterioration [Unknown]
  - Cerebral haematoma [Not Recovered/Not Resolved]
  - Haemorrhage intracranial [Not Recovered/Not Resolved]
